FAERS Safety Report 13343122 (Version 6)
Quarter: 2017Q2

REPORT INFORMATION
  Report Type: Spontaneous
  Country: JP (occurrence: JP)
  Receive Date: 20170316
  Receipt Date: 20170501
  Transmission Date: 20170830
  Serious: Yes (Hospitalization, Other)
  Sender: FDA-Public Use
  Company Number: JP-PFIZER INC-2017113465

PATIENT
  Age: 78 Year
  Sex: Male
  Weight: 53.6 kg

DRUGS (11)
  1. CRESTOR [Concomitant]
     Active Substance: ROSUVASTATIN CALCIUM
     Dosage: 5 MG, DAILY
     Route: 048
     Dates: end: 20170213
  2. LOXOPROFEN [Concomitant]
     Active Substance: LOXOPROFEN
     Dosage: 180 MG, DAILY
     Route: 048
     Dates: start: 20170106, end: 20170213
  3. CILOSTAZOL. [Concomitant]
     Active Substance: CILOSTAZOL
     Dosage: 200 MG, DAILY
     Route: 048
     Dates: end: 20170213
  4. URIEF [Concomitant]
     Active Substance: SILODOSIN
     Dosage: 8 MG, DAILY
     Route: 048
     Dates: start: 20160222, end: 20170213
  5. TRAMCET [Concomitant]
     Active Substance: ACETAMINOPHEN\TRAMADOL
     Dosage: 150 MG, DAILY
     Route: 048
     Dates: start: 20161116, end: 20170213
  6. LYRICA [Suspect]
     Active Substance: PREGABALIN
     Dosage: 450 MG, DAILY
     Route: 048
     Dates: start: 20161126, end: 20170213
  7. NAUZELIN [Suspect]
     Active Substance: DOMPERIDONE
     Dosage: 40 MG, DAILY
     Route: 048
     Dates: start: 20161116, end: 20170213
  8. CYMBALTA [Concomitant]
     Active Substance: DULOXETINE HYDROCHLORIDE
     Dosage: 20 MG, DAILY
     Route: 048
     Dates: start: 20170116, end: 20170213
  9. ZYLORIC [Concomitant]
     Active Substance: ALLOPURINOL
     Dosage: 100 MG, DAILY
     Route: 048
     Dates: end: 20170213
  10. MECOBALAMIN [Concomitant]
     Active Substance: METHYLCOBALAMIN
     Dosage: 1.5 MG, DAILY
     Route: 048
     Dates: start: 20170116, end: 20170213
  11. MICAMLO [Concomitant]
     Active Substance: AMLODIPINE BESYLATE\TELMISARTAN
     Dosage: 1 TABLET, DAILY
     Route: 048
     Dates: end: 20170213

REACTIONS (1)
  - Interstitial lung disease [Recovering/Resolving]

NARRATIVE: CASE EVENT DATE: 20170212
